FAERS Safety Report 8730548 (Version 5)
Quarter: 2014Q2

REPORT INFORMATION
  Report Type: Spontaneous
  Country: US (occurrence: US)
  Receive Date: 20120817
  Receipt Date: 20140605
  Transmission Date: 20141212
  Serious: Yes (Other)
  Sender: FDA-Public Use
  Company Number: US-ASTRAZENECA-2010SE44827

PATIENT
  Age: 73 Year
  Sex: Male
  Weight: 92.5 kg

DRUGS (23)
  1. NEXIUM [Suspect]
     Indication: GASTROOESOPHAGEAL REFLUX DISEASE
     Route: 048
     Dates: start: 2001
  2. NEXIUM [Suspect]
     Indication: GASTROOESOPHAGEAL REFLUX DISEASE
     Route: 048
     Dates: start: 2001, end: 2006
  3. NEXIUM [Suspect]
     Indication: GASTROOESOPHAGEAL REFLUX DISEASE
     Route: 048
     Dates: start: 2006
  4. METOPROLOL [Suspect]
     Indication: CARDIAC DISORDER
     Route: 048
  5. PRILOSEC [Suspect]
     Indication: GASTROOESOPHAGEAL REFLUX DISEASE
     Route: 048
  6. ALBUTEROL [Concomitant]
  7. LYRICA [Concomitant]
     Indication: PAIN
     Route: 048
     Dates: start: 2012
  8. ZOLOFT [Concomitant]
     Indication: PAIN
     Dates: start: 1999
  9. COZAAR [Concomitant]
     Indication: BLOOD PRESSURE ABNORMAL
     Route: 048
  10. COZAAR [Concomitant]
     Indication: BLOOD PRESSURE ABNORMAL
     Route: 048
     Dates: start: 2004
  11. XANAX [Concomitant]
     Indication: POOR QUALITY SLEEP
     Route: 048
  12. HYDROC/ACT [Concomitant]
     Indication: PAIN
     Dosage: 10/325 3 PER DAY
     Route: 048
     Dates: start: 2004
  13. ASPIRIN [Concomitant]
     Indication: ANTICOAGULANT THERAPY
     Route: 048
     Dates: start: 201312
  14. STOOL SOFTENER [Concomitant]
     Indication: ABNORMAL FAECES
     Dosage: DAILY
     Route: 048
  15. STOOL SOFTENER [Concomitant]
     Indication: ABNORMAL FAECES
     Route: 048
     Dates: start: 2013
  16. FENOFIBRATE [Concomitant]
     Indication: BLOOD TRIGLYCERIDES
     Route: 048
     Dates: start: 201312
  17. ATORVASTATIN [Concomitant]
     Indication: BLOOD CHOLESTEROL ABNORMAL
     Route: 048
     Dates: start: 2013
  18. VIT D3 [Concomitant]
     Indication: VITAMIN D
     Dosage: DAILY
     Route: 048
  19. VIT D3 [Concomitant]
     Indication: VITAMIN D
     Route: 048
  20. CORTISONE [Concomitant]
     Dosage: SHOT
  21. HYDROCORTISONE [Concomitant]
     Indication: ADRENAL DISORDER
     Dosage: 10MG 1 1/2 TAB AM 1/2 TAB
     Route: 048
     Dates: start: 20140520
  22. TESTOSTERONE [Concomitant]
     Indication: BLOOD TESTOSTERONE DECREASED
     Dosage: SHOT, UNKNOWN Q2WK
     Dates: start: 2012
  23. TESTOSTERONE [Concomitant]
     Indication: BLOOD TESTOSTERONE DECREASED
     Dosage: UNKNOWN ONCE A MONTH
     Dates: start: 2009, end: 2012

REACTIONS (18)
  - Adrenal insufficiency [Unknown]
  - Pneumonia [Unknown]
  - Renal failure [Unknown]
  - Pneumothorax [Unknown]
  - Renal failure chronic [Unknown]
  - Hypoacusis [Unknown]
  - Gastrooesophageal reflux disease [Unknown]
  - Blood iron decreased [Unknown]
  - Gastric disorder [Unknown]
  - Sleep apnoea syndrome [Unknown]
  - Chronic obstructive pulmonary disease [Unknown]
  - Emphysema [Unknown]
  - Vascular occlusion [Unknown]
  - Anaemia [Unknown]
  - Malaise [Unknown]
  - Intentional product misuse [Unknown]
  - Off label use [Unknown]
  - Drug ineffective [Unknown]
